FAERS Safety Report 23189121 (Version 9)
Quarter: 2024Q4

REPORT INFORMATION
  Report Type: Report from Study
  Country: JP (occurrence: JP)
  Receive Date: 20231115
  Receipt Date: 20241111
  Transmission Date: 20250115
  Serious: Yes (Death, Other)
  Sender: ROCHE
  Company Number: JP-CHUGAI-2023036732

PATIENT
  Age: 57 Year
  Sex: Female
  Weight: 54.0 kg

DRUGS (3)
  1. TECENTRIQ [Suspect]
     Active Substance: ATEZOLIZUMAB
     Indication: Triple negative breast cancer
     Route: 065
     Dates: start: 20231004
  2. PACLITAXEL [Suspect]
     Active Substance: PACLITAXEL
     Indication: Triple negative breast cancer
     Dosage: 75 MILLIGRAM/SQ. METER, SINGLE
     Route: 065
     Dates: start: 20231004, end: 20231004
  3. PACLITAXEL [Suspect]
     Active Substance: PACLITAXEL
     Dosage: 75 MILLIGRAM/SQ. METER, SINGLE
     Route: 065
     Dates: start: 20231129, end: 20231129

REACTIONS (5)
  - Anaemia [Recovered/Resolved]
  - Neuropathy peripheral [Not Recovered/Not Resolved]
  - Aspartate aminotransferase increased [Recovered/Resolved]
  - Myalgia [Recovered/Resolved]
  - Triple negative breast cancer [Fatal]

NARRATIVE: CASE EVENT DATE: 20231011
